FAERS Safety Report 7553100-1 (Version None)
Quarter: 2011Q2

REPORT INFORMATION
  Report Type: 
  Country: None (occurrence: None)
  Receive Date: 20110616
  Receipt Date: 20091109
  Transmission Date: 20111010
  Serious: Yes (Hospitalization, Other)
  Sender: FDA-Public Use
  Company Number: US-BAYER-200938804NA

PATIENT
  Age: 54 Year
  Sex: Female
  Weight: 69.841 kg

DRUGS (49)
  1. LISINOPRIL [Concomitant]
     Dosage: 10 MG, QD
     Route: 048
     Dates: start: 20070501
  2. VANCOMYCIN [Concomitant]
     Indication: PNEUMONIA
     Dosage: UNK
     Route: 042
     Dates: start: 20070501
  3. IMIPENEM [Concomitant]
     Indication: PNEUMONIA
     Dosage: UNK
     Dates: start: 20070520
  4. EPINEPHRINE [Concomitant]
     Dosage: UNK
     Route: 042
     Dates: start: 20070508
  5. INSULIN [Concomitant]
     Dosage: UNK
     Route: 042
     Dates: start: 20070508
  6. PLASMA [Concomitant]
     Dosage: 4 UNITS
  7. THIAMINE [Concomitant]
     Dosage: 100 MG, QD
     Dates: start: 20070501
  8. MILRINONE [Concomitant]
     Dosage: UNK
     Route: 042
     Dates: start: 20070501
  9. PLAVIX [Concomitant]
     Dosage: 75 MG, QD
     Dates: start: 20070501
  10. FENTANYL-100 [Concomitant]
     Dosage: UNK
     Route: 042
     Dates: start: 20070508, end: 20070508
  11. WELLBUTRIN [Concomitant]
     Dosage: 150 MG, BID
     Route: 048
  12. HEPARIN [Concomitant]
     Dosage: UNK
     Dates: start: 20070501
  13. LASIX [Concomitant]
     Dosage: UNK
     Route: 048
     Dates: start: 20070501
  14. PREVACID [Concomitant]
     Dosage: 30 MG, QD
     Route: 048
     Dates: start: 20070501
  15. METHADONE HCL [Concomitant]
     Dosage: 28 MG, QD
     Route: 048
     Dates: start: 20070501
  16. ZOCOR [Concomitant]
     Dosage: 80 MG, QD
     Route: 042
     Dates: start: 20070501
  17. SPIRONOLACTONE [Concomitant]
     Dosage: 25 MG, QD
     Route: 048
     Dates: start: 20070501
  18. DOBUTAMINE HYDROCHLORIDE [Concomitant]
     Dosage: UNK
     Route: 041
     Dates: start: 20070520
  19. VASOPRESSIN AND ANALOGUES [Concomitant]
     Dosage: UNK
     Route: 042
     Dates: start: 20070515, end: 20070520
  20. HYPNOTICS AND SEDATIVES [Concomitant]
     Dosage: UNK
     Dates: end: 20070520
  21. MIDAZOLAM HCL [Concomitant]
     Dosage: UNK
     Route: 042
     Dates: start: 20070508, end: 20070508
  22. NIFEDIPINE [Concomitant]
     Dosage: UNK
     Route: 060
     Dates: start: 20070508, end: 20070508
  23. TRASYLOL [Suspect]
     Indication: CORONARY ARTERY BYPASS
     Dosage: 6-100CC VIALS
     Route: 042
     Dates: start: 20070508, end: 20070508
  24. CONTRAST MEDIA [Concomitant]
     Dosage: 80 ML, UNK
     Route: 042
     Dates: start: 20070503
  25. MUSCLE RELAXANTS [Concomitant]
     Dosage: UNK
     Dates: start: 20070515, end: 20070520
  26. ANCEF [Concomitant]
     Dosage: UNK
     Route: 042
     Dates: start: 20070508
  27. PROPOFOL [Concomitant]
  28. TRASYLOL [Suspect]
     Indication: CAROTID ENDARTERECTOMY
  29. LANSOPRAZOLE [Concomitant]
     Dosage: 30 MG, QD
     Dates: start: 20070501
  30. VANCOMYCIN [Concomitant]
     Indication: INFECTION PROPHYLAXIS
     Dosage: UNK
     Dates: start: 20070520
  31. IMIPENEM [Concomitant]
     Indication: INFECTION PROPHYLAXIS
  32. AMIODARONE HCL [Concomitant]
     Dosage: UNK
     Route: 041
     Dates: start: 20070524
  33. DESMOPRESSIN [Concomitant]
     Dosage: UNK
     Route: 042
     Dates: start: 20070508, end: 20070508
  34. PLATELETS [Concomitant]
     Dosage: 1 UNIT
  35. FOLIC ACID [Concomitant]
     Dosage: 1 MG, QD
     Dates: start: 20070501
  36. ACETYLSALICYLIC ACID SRT [Concomitant]
     Dosage: UNK
     Dates: start: 20070501
  37. GENTAMYCIN SULFATE [Concomitant]
     Dosage: 150 MG, UNK
     Route: 042
     Dates: start: 20070501
  38. NITRIC OXIDE [Concomitant]
     Dosage: INHALED
     Route: 055
     Dates: start: 20070515
  39. CLINDAMYCIN [Concomitant]
     Dosage: UNK
     Route: 042
     Dates: start: 20070508
  40. TRAZODONE HCL [Concomitant]
  41. ZOCOR [Concomitant]
     Dosage: 20 MG, QD
     Route: 048
     Dates: start: 20070501
  42. ZOLPIDEM [Concomitant]
     Dosage: 5 MG, UNK
     Dates: start: 20070501
  43. CEFEPIME [Concomitant]
     Dosage: 1 G, BID
     Route: 042
     Dates: start: 20070501
  44. TRASYLOL [Suspect]
     Indication: MITRAL VALVE REPLACEMENT
  45. TRASYLOL [Suspect]
     Indication: CORONARY ENDARTERECTOMY
  46. CARVEDILOL [Concomitant]
     Dosage: 12.5 MG, BID
     Route: 048
     Dates: start: 20070501
  47. LASIX [Concomitant]
     Dosage: UNK
     Route: 042
     Dates: start: 20070501
  48. NIMBEX [Concomitant]
     Dosage: UNK
     Route: 042
     Dates: start: 20070501
  49. PANCURONIUM BROMIDE [Concomitant]

REACTIONS (15)
  - RENAL INJURY [None]
  - UNEVALUABLE EVENT [None]
  - AMNESIA [None]
  - RENAL IMPAIRMENT [None]
  - MENTAL IMPAIRMENT [None]
  - HALLUCINATION, VISUAL [None]
  - EMOTIONAL DISTRESS [None]
  - STRESS [None]
  - ANXIETY [None]
  - RENAL FAILURE [None]
  - CARDIAC DISORDER [None]
  - CEREBROVASCULAR ACCIDENT [None]
  - DEPRESSION [None]
  - FEAR [None]
  - PAIN [None]
